FAERS Safety Report 5521938-8 (Version None)
Quarter: 2007Q4

REPORT INFORMATION
  Report Type: 
  Country: None (occurrence: None)
  Receive Date: 20071120
  Receipt Date: 20070726
  Transmission Date: 20080405
  Serious: No
  Sender: FDA-Public Use
  Company Number: US-BRISTOL-MYERS SQUIBB COMPANY-13648787

PATIENT
  Age: 82 Year
  Sex: Female
  Weight: 54 kg

DRUGS (3)
  1. AVALIDE [Suspect]
     Indication: HYPERTENSION
     Dates: start: 20061201
  2. ATENOLOL [Suspect]
     Indication: HYPERTENSION
     Dates: start: 20061201
  3. MULTI-VITAMIN [Concomitant]

REACTIONS (4)
  - BLOOD PRESSURE INCREASED [None]
  - HEADACHE [None]
  - INSOMNIA [None]
  - TINNITUS [None]
